FAERS Safety Report 6095874-5 (Version None)
Quarter: 2009Q1

REPORT INFORMATION
  Report Type: 
  Country: None (occurrence: None)
  Receive Date: 20090227
  Receipt Date: 20080702
  Transmission Date: 20090719
  Serious: No
  Sender: FDA-Public Use
  Company Number: A0735840A

PATIENT
  Age: 26 Year
  Sex: Female

DRUGS (2)
  1. LAMICTAL [Suspect]
     Dosage: 100MG PER DAY
     Route: 048
     Dates: start: 20080417
  2. FLUVOXAMINE [Concomitant]

REACTIONS (5)
  - ABDOMINAL DISCOMFORT [None]
  - DIZZINESS [None]
  - FATIGUE [None]
  - LETHARGY [None]
  - NAUSEA [None]
